FAERS Safety Report 12200097 (Version 2)
Quarter: 2016Q2

REPORT INFORMATION
  Report Type: Spontaneous
  Country: FR (occurrence: FR)
  Receive Date: 20160322
  Receipt Date: 20160415
  Transmission Date: 20160815
  Serious: Yes (Other)
  Sender: FDA-Public Use
  Company Number: FR-WATSON-2016-05976

PATIENT
  Age: 37 Year
  Sex: Female

DRUGS (7)
  1. ETHAMBUTOL [Suspect]
     Active Substance: ETHAMBUTOL HYDROCHLORIDE
     Indication: ATYPICAL MYCOBACTERIAL INFECTION
     Dosage: 500 MG, DAILY
     Route: 065
  2. RIFABUTIN. [Interacting]
     Active Substance: RIFABUTIN
  3. AZATHIOPRINE (UNKNOWN) [Suspect]
     Active Substance: AZATHIOPRINE
     Indication: IMMUNOSUPPRESSION
     Dosage: 25 MG, DAILY
     Route: 065
  4. PREDNISOLONE (UNKNOWN) [Suspect]
     Active Substance: PREDNISOLONE
     Indication: IMMUNOSUPPRESSION
  5. CLARITHROMYCIN (UNKNOWN) [Suspect]
     Active Substance: CLARITHROMYCIN
     Indication: ATYPICAL MYCOBACTERIAL INFECTION
     Dosage: 1 G, DAILY
     Route: 065
  6. RIFABUTIN. [Interacting]
     Active Substance: RIFABUTIN
     Indication: ATYPICAL MYCOBACTERIAL INFECTION
     Dosage: 300 MG, DAILY
     Route: 065
  7. RIFABUTIN. [Interacting]
     Active Substance: RIFABUTIN

REACTIONS (4)
  - Immune reconstitution inflammatory syndrome [Unknown]
  - Hepatitis toxic [Recovered/Resolved]
  - Mycobacterium avium complex infection [Recovering/Resolving]
  - Drug interaction [Unknown]
